FAERS Safety Report 12328786 (Version 1)
Quarter: 2016Q2

REPORT INFORMATION
  Report Type: Spontaneous
  Country: US (occurrence: US)
  Receive Date: 20160503
  Receipt Date: 20160503
  Transmission Date: 20160815
  Serious: No
  Sender: FDA-Public Use
  Company Number: US-BEH-2015050772

PATIENT
  Age: 21 Year
  Sex: Male
  Weight: 94 kg

DRUGS (14)
  1. DIPHENHYDRAMINE. [Concomitant]
     Active Substance: DIPHENHYDRAMINE
     Dosage: 1 CAP AS DIRECTED
     Route: 048
  2. EUFLEXXA [Concomitant]
     Active Substance: HYALURONATE SODIUM
     Route: 048
  3. ADVAIR HFA [Concomitant]
     Active Substance: FLUTICASONE PROPIONATE\SALMETEROL XINAFOATE
     Dosage: 1 PUFF TWICE DAILY
     Route: 055
  4. GUAIFENESIN. [Concomitant]
     Active Substance: GUAIFENESIN
     Dosage: 2 TABLE SPOONS EVERY 6 HOURS
     Route: 048
  5. HIZENTRA [Suspect]
     Active Substance: HUMAN IMMUNOGLOBULIN G
     Dosage: 4 G 20 ML VIAL
     Route: 058
  6. MULTI VITAMIN [Concomitant]
     Active Substance: VITAMINS
     Dosage: 1 CAPSULE DAILY
     Route: 048
  7. EPIPEN [Concomitant]
     Active Substance: EPINEPHRINE
     Route: 030
  8. HIZENTRA [Suspect]
     Active Substance: HUMAN IMMUNOGLOBULIN G
     Indication: IMMUNODEFICIENCY COMMON VARIABLE
     Dosage: 2 G 10 ML VIAL
     Route: 058
  9. ALBUTEROL. [Concomitant]
     Active Substance: ALBUTEROL
     Dosage: 2 PUFFS EVERY 6 HOURS
     Route: 055
  10. LMX [Concomitant]
     Active Substance: LIDOCAINE
     Dosage: 0.4% PRIOR TO INFUSIONS
     Route: 061
  11. FLONASE [Concomitant]
     Active Substance: FLUTICASONE PROPIONATE
     Dosage: 2 SPRAYS DAILY
     Route: 055
  12. AUGMENTIN [Concomitant]
     Active Substance: AMOXICILLIN\CLAVULANATE POTASSIUM
     Dosage: 1 DOSE AS DIRECTED
     Route: 048
  13. MOTRIN [Concomitant]
     Active Substance: IBUPROFEN
     Route: 048
  14. PULMICORT TURBUHALER [Concomitant]
     Active Substance: BUDESONIDE
     Dosage: 1 DOSE AS NEEDED
     Route: 045

REACTIONS (1)
  - Rash [Unknown]

NARRATIVE: CASE EVENT DATE: 20150424
